FAERS Safety Report 19204399 (Version 1)
Quarter: 2021Q2

REPORT INFORMATION
  Report Type: Spontaneous
  Country: US (occurrence: US)
  Receive Date: 20210503
  Receipt Date: 20210503
  Transmission Date: 20210717
  Serious: Yes (Hospitalization, Other)
  Sender: FDA-Public Use
  Company Number: US-CIPLA (EU) LIMITED-2020US09670

PATIENT

DRUGS (5)
  1. GEMCITABINE. [Suspect]
     Active Substance: GEMCITABINE
     Indication: CHOLANGIOCARCINOMA
     Dosage: 1000 MG/M2, ON DAYS 1 AND 8 OF EACH 21?DAY CYCLE
     Route: 042
  2. GEMCITABINE. [Suspect]
     Active Substance: GEMCITABINE
     Dosage: 500 MG/M2, UNK
  3. CISPLATIN. [Concomitant]
     Active Substance: CISPLATIN
     Indication: CHOLANGIOCARCINOMA
     Dosage: 25 MG/M2, ON DAYS 1 AND 8 OF EACH 21?DAY CYCLE
     Route: 042
  4. GEMCITABINE. [Suspect]
     Active Substance: GEMCITABINE
     Dosage: 800 MG/M2, UNK
  5. GEMCITABINE. [Suspect]
     Active Substance: GEMCITABINE
     Dosage: 700 MG/M2, UNK

REACTIONS (4)
  - Thrombotic microangiopathy [Recovered/Resolved]
  - Disease progression [Recovered/Resolved]
  - Atypical haemolytic uraemic syndrome [Recovered/Resolved]
  - Myelosuppression [Recovering/Resolving]
